FAERS Safety Report 8510022-7 (Version None)
Quarter: 2012Q3

REPORT INFORMATION
  Report Type: 
  Country: None (occurrence: None)
  Receive Date: 20120713
  Receipt Date: 20120713
  Transmission Date: 20120928
  Serious: Yes (Hospitalization)
  Sender: FDA-Public Use
  Company Number: JP-009507513-1207JPN003650

PATIENT

DRUGS (4)
  1. FP (SELEGILINE HYDROCHLORIDE) [Concomitant]
     Dosage: DIVIDED DOSE AMOUNT U
     Route: 048
  2. MENESIT TABLETS - 250 [Suspect]
     Dosage: DAILY DOSAGE UNKNOWN
     Route: 048
  3. METLIGINE [Concomitant]
     Dosage: DIVIDED DOSE AMOUNT U
     Route: 048
  4. DOPS [Suspect]
     Dosage: DIVIDED DOSE AMOUNT U
     Route: 048

REACTIONS (4)
  - HOSPITALISATION [None]
  - HAEMATURIA [None]
  - PLATELET COUNT DECREASED [None]
  - ORTHOSTATIC HYPOTENSION [None]
